FAERS Safety Report 5202833-0 (Version None)
Quarter: 2006Q4

REPORT INFORMATION
  Report Type: 
  Country: None (occurrence: None)
  Receive Date: 20061018
  Receipt Date: 20060519
  Transmission Date: 20070319
  Serious: Yes (Other)
  Sender: FDA-Public Use
  Company Number: PHEH2006US06721

PATIENT
  Age: 67 Year
  Sex: Female

DRUGS (2)
  1. ZOMETA [Suspect]
  2. CHEMOTHERAPEUTICS, OTHER (CHEMOTHERAPEUTICS, OTHER) [Concomitant]

REACTIONS (3)
  - BLOOD CALCIUM INCREASED [None]
  - CARCINOEMBRYONIC ANTIGEN INCREASED [None]
  - MALIGNANT NEOPLASM PROGRESSION [None]
